FAERS Safety Report 13622272 (Version 1)
Quarter: 2017Q2

REPORT INFORMATION
  Report Type: Spontaneous
  Country: US (occurrence: US)
  Receive Date: 20170607
  Receipt Date: 20170607
  Transmission Date: 20170830
  Serious: No
  Sender: FDA-Public Use
  Company Number: US-ROCHE-1812148

PATIENT
  Sex: Male
  Weight: 71.67 kg

DRUGS (15)
  1. BENICAR [Concomitant]
     Active Substance: OLMESARTAN MEDOXOMIL
     Indication: HYPERTENSION
     Dosage: HALF TABLET
     Route: 065
  2. SIMVASTATIN. [Concomitant]
     Active Substance: SIMVASTATIN
     Indication: BLOOD CHOLESTEROL INCREASED
     Route: 048
  3. VITAMIN E [Concomitant]
     Active Substance: .ALPHA.-TOCOPHEROL
     Route: 048
  4. TAMSULOSIN [Concomitant]
     Active Substance: TAMSULOSIN
     Route: 048
  5. XOLAIR [Concomitant]
     Active Substance: OMALIZUMAB
     Dosage: 2 VIALS INJECTED INTO MUSCLE ONCE A MONTH
     Route: 065
  6. SELENIUM [Concomitant]
     Active Substance: SELENIUM
     Route: 048
  7. AZELASTINE [Concomitant]
     Active Substance: AZELASTINE
     Indication: HYPERSENSITIVITY
  8. VITAMIN D3 [Concomitant]
     Active Substance: CHOLECALCIFEROL
     Indication: ONYCHOCLASIS
     Route: 048
  9. SUPER B COMPLEX [Concomitant]
     Active Substance: CYANOCOBALAMIN\DEXPANTHENOL\NIACINAMIDE\PYRIDOXINE HYDROCHLORIDE\RIBOFLAVIN 5^-PHOSPHATE SODIUM\THIAMINE HYDROCHLORIDE\VITAMIN B COMPLEX
     Dosage: SOMETIMES TWICE A DAY
     Route: 048
  10. KIRKLAND SIGNATURE ALLER TEC ALLERGY [Concomitant]
     Active Substance: CETIRIZINE HYDROCHLORIDE
     Indication: HYPERSENSITIVITY
     Route: 048
  11. AZELASTINE HYDROCHLORIDE. [Concomitant]
     Active Substance: AZELASTINE HYDROCHLORIDE
     Indication: EYE ALLERGY
     Dosage: 0.5% ONE DROP PER EYE
     Route: 065
  12. AZELASTINE [Concomitant]
     Active Substance: AZELASTINE
     Indication: NASAL CONGESTION
     Dosage: 2 SQUIRTS PER NOSE
     Route: 065
  13. KLONOPIN [Suspect]
     Active Substance: CLONAZEPAM
     Indication: MERYCISM
     Route: 048
  14. OMEGA 3 [Concomitant]
     Active Substance: OMEGA-3 FATTY ACIDS
     Dosage: AKES 4 CAPSULES AT ONE TIME TO MAKE 4 GRAMS A DAY
     Route: 048
  15. SYSTANE ULTRA [Concomitant]
     Active Substance: POLYETHYLENE GLYCOL 400\PROPYLENE GLYCOL
     Dosage: 1 DROP IN EACH EYE
     Route: 065
     Dates: start: 2016

REACTIONS (1)
  - Underdose [Unknown]
